FAERS Safety Report 8863163 (Version 1)
Quarter: 2012Q4

REPORT INFORMATION
  Report Type: 
  Country: GB (occurrence: GB)
  Receive Date: 20121026
  Receipt Date: 20121026
  Transmission Date: 20130627
  Serious: Yes (Other)
  Sender: FDA-Public Use
  Company Number: GB-TEVA-365757ISR

PATIENT
  Age: 52 Year
  Sex: Female
  Weight: 129 kg

DRUGS (10)
  1. SERTRALINE [Suspect]
     Dates: start: 20121004
  2. QVAR [Concomitant]
     Dates: start: 20120424, end: 20120802
  3. ZOLPIDEM [Concomitant]
     Dates: start: 20120821, end: 20120904
  4. FEXOFENADINE [Concomitant]
     Dates: start: 20120821, end: 20120920
  5. SODIUM CROMOGLICATE [Concomitant]
     Dates: start: 20120821, end: 20120828
  6. FLUOXETINE [Concomitant]
     Dates: start: 20120822, end: 20120921
  7. LORAZEPAM [Concomitant]
     Dates: start: 20120829, end: 20120926
  8. CO-CODAMOL [Concomitant]
     Dates: start: 20121004
  9. AMOXICILLIN [Concomitant]
     Dates: start: 20121009
  10. PREDNISOLONE [Concomitant]
     Dates: start: 20121009

REACTIONS (1)
  - Visual impairment [Recovering/Resolving]
